FAERS Safety Report 16791947 (Version 1)
Quarter: 2019Q3

REPORT INFORMATION
  Report Type: Spontaneous
  Country: US (occurrence: US)
  Receive Date: 20190910
  Receipt Date: 20190910
  Transmission Date: 20191005
  Serious: Yes (Hospitalization)
  Sender: FDA-Public Use
  Company Number: US-SHIRE-US201929084

PATIENT
  Age: 6 Year
  Sex: Female
  Weight: 20 kg

DRUGS (2)
  1. CLONIDINE. [Concomitant]
     Active Substance: CLONIDINE
     Indication: PRODUCT USED FOR UNKNOWN INDICATION
  2. 503 (GUANFACINE HYDROCHLORIDE) [Suspect]
     Active Substance: GUANFACINE HYDROCHLORIDE
     Indication: PRODUCT USED FOR UNKNOWN INDICATION
     Dosage: 3 MILLIGRAM; 2MG EACH MORNING AND 1 MG EACH EVENING
     Route: 065

REACTIONS (6)
  - Toxicity to various agents [Unknown]
  - Lethargy [Unknown]
  - Somnolence [Unknown]
  - Product availability issue [Unknown]
  - Sinus bradycardia [Unknown]
  - Inappropriate schedule of product administration [Unknown]
